FAERS Safety Report 11061921 (Version 1)
Quarter: 2015Q2

REPORT INFORMATION
  Report Type: Spontaneous
  Country: None (occurrence: None)
  Receive Date: 20150414
  Receipt Date: 20150414
  Transmission Date: 20150821
  Serious: Yes (Hospitalization)
  Sender: FDA-Public Use
  Company Number: 1713747-2015-99904

PATIENT
  Age: 34 Year
  Sex: Female
  Weight: 71.67 kg

DRUGS (18)
  1. CALCIUM ACETATE. [Concomitant]
     Active Substance: CALCIUM ACETATE
  2. LIBERTY CYCLER [Concomitant]
     Active Substance: DEVICE
  3. LIBERTY CYCLER SET [Concomitant]
     Active Substance: DEVICE
  4. NEXIUM [Concomitant]
     Active Substance: ESOMEPRAZOLE MAGNESIUM
  5. CYCLOBENZAPRINE [Concomitant]
     Active Substance: CYCLOBENZAPRINE
  6. RENVELA [Concomitant]
     Active Substance: SEVELAMER CARBONATE
  7. CLONIDINE. [Concomitant]
     Active Substance: CLONIDINE
  8. MIDODRINE [Concomitant]
     Active Substance: MIDODRINE
  9. ZEMPLAR [Concomitant]
     Active Substance: PARICALCITOL
  10. CALCIUM CARBONATE. [Concomitant]
     Active Substance: CALCIUM CARBONATE
  11. KEPPRA [Concomitant]
     Active Substance: LEVETIRACETAM
  12. DELFLEX [Suspect]
     Active Substance: CALCIUM CHLORIDE\DEXTROSE MONOHYDRATE\MAGNESIUM CHLORIDE\SODIUM CHLORIDE\SODIUM LACTATE
     Indication: CHRONIC KIDNEY DISEASE
     Dosage: PERITONEAL DIALYSIS
     Dates: start: 20120509
  13. DIALYVITE VITAMIN [Concomitant]
  14. MIRALAX [Concomitant]
     Active Substance: POLYETHYLENE GLYCOL 3350
  15. REQUIP [Concomitant]
     Active Substance: ROPINIROLE HYDROCHLORIDE
  16. SERTRALINE [Concomitant]
     Active Substance: SERTRALINE HYDROCHLORIDE
  17. METOPROLOL [Concomitant]
     Active Substance: METOPROLOL
  18. CAMILA [Concomitant]
     Active Substance: NORETHINDRONE

REACTIONS (1)
  - Peritonitis [None]

NARRATIVE: CASE EVENT DATE: 20120506
